FAERS Safety Report 16631332 (Version 8)
Quarter: 2019Q4

REPORT INFORMATION
  Report Type: Report from Study
  Country: DE (occurrence: DE)
  Receive Date: 20190725
  Receipt Date: 20191216
  Transmission Date: 20200122
  Serious: Yes (Hospitalization, Other)
  Sender: FDA-Public Use
  Company Number: DE-SHIRE-DE201923402

PATIENT

DRUGS (7)
  1. TEDUGLUTIDE [Suspect]
     Active Substance: TEDUGLUTIDE
     Dosage: 0.20 MILLILITER, 1X/DAY:QD
     Route: 058
     Dates: start: 20190801, end: 20190829
  2. TEDUGLUTIDE [Suspect]
     Active Substance: TEDUGLUTIDE
     Dosage: 0.16 MILLILITER, 1X/DAY:QD
     Route: 058
     Dates: start: 20191102, end: 20191106
  3. TEDUGLUTIDE [Suspect]
     Active Substance: TEDUGLUTIDE
     Dosage: 0.16 MILLILITER, 1X/DAY:QD
     Route: 058
     Dates: start: 20191022, end: 20191030
  4. TEDUGLUTIDE [Suspect]
     Active Substance: TEDUGLUTIDE
     Dosage: 0.16 MILLILITER, 1X/DAY:QD
     Route: 058
     Dates: start: 20190830
  5. TEDUGLUTIDE [Suspect]
     Active Substance: TEDUGLUTIDE
     Dosage: 0.32 MILLILITER, 1X/DAY:QD
     Route: 058
     Dates: start: 20181106, end: 20190212
  6. TEDUGLUTIDE [Suspect]
     Active Substance: TEDUGLUTIDE
     Dosage: 0.2 LITER, 1X/DAY:QD
     Route: 058
     Dates: start: 20191204
  7. TEDUGLUTIDE [Suspect]
     Active Substance: TEDUGLUTIDE
     Indication: SHORT-BOWEL SYNDROME
     Dosage: 0.28 MILLILITER, 1X/DAY:QD
     Route: 058
     Dates: start: 20181023

REACTIONS (13)
  - Vertigo [Unknown]
  - Staphylococcal infection [Recovered/Resolved]
  - Dehydration [Unknown]
  - Vomiting [Recovered/Resolved]
  - Dizziness [Not Recovered/Not Resolved]
  - Anaemia [Recovered/Resolved]
  - Hypotension [Recovered/Resolved]
  - Blood creatinine abnormal [Recovered/Resolved]
  - General physical health deterioration [Unknown]
  - Hypertension [Recovered/Resolved]
  - Hypovitaminosis [Unknown]
  - Malnutrition [Recovered/Resolved]
  - Weight decreased [Recovered/Resolved]

NARRATIVE: CASE EVENT DATE: 20190715
